FAERS Safety Report 5057038-3 (Version None)
Quarter: 2006Q2

REPORT INFORMATION
  Report Type: 
  Country: None (occurrence: None)
  Receive Date: 20060622
  Receipt Date: 20060421
  Transmission Date: 20061013
  Serious: Yes (Other)
  Sender: FDA-Public Use
  Company Number: US-JNJFOC-20060405825

PATIENT
  Age: 52 Year
  Sex: Female
  Weight: 61.2356 kg

DRUGS (6)
  1. DURAGESIC-100 [Suspect]
     Indication: PAIN
     Dosage: SEE IMAGE
     Route: 062
     Dates: start: 20050101
  2. SINGULAIR (MONTELUKAST SODIUM) TABLET [Concomitant]
  3. PRINIVIL [Concomitant]
  4. VALIUM [Concomitant]
  5. NEURONTIN [Concomitant]
  6. HYDROCODONE (HYDROCODONE) TABLET [Concomitant]

REACTIONS (3)
  - AMNESIA [None]
  - ASTHMA [None]
  - BACK PAIN [None]
